FAERS Safety Report 17048379 (Version 1)
Quarter: 2019Q4

REPORT INFORMATION
  Report Type: Spontaneous
  Country: US (occurrence: US)
  Receive Date: 20191118
  Receipt Date: 20191118
  Transmission Date: 20200122
  Serious: Yes (Death)
  Sender: FDA-Public Use
  Company Number: None

PATIENT
  Age: 79 Year
  Sex: Male
  Weight: 71.1 kg

DRUGS (21)
  1. RANITIDINE. [Concomitant]
     Active Substance: RANITIDINE
  2. CALCIUM CARBONATE. [Concomitant]
     Active Substance: CALCIUM CARBONATE
  3. VITAMIN B12 [Concomitant]
     Active Substance: CYANOCOBALAMIN
  4. OMEPRAZOLE. [Concomitant]
     Active Substance: OMEPRAZOLE
  5. ELIGARD [Concomitant]
     Active Substance: LEUPROLIDE ACETATE
  6. HERBAL COMPLEX NO 239 [Concomitant]
  7. TAMSULOSIN [Concomitant]
     Active Substance: TAMSULOSIN
  8. KETOCONAZOLE. [Concomitant]
     Active Substance: KETOCONAZOLE
  9. METHYLPREDNISOLONE. [Concomitant]
     Active Substance: METHYLPREDNISOLONE
  10. FERROUS GLUCONATE [Concomitant]
     Active Substance: FERROUS GLUCONATE
  11. POLYETHYLENE GLYCOL [Concomitant]
     Active Substance: POLYETHYLENE GLYCOLS
  12. HYDROCODONE/ACETAMINOPHEN [Concomitant]
     Active Substance: ACETAMINOPHEN\HYDROCODONE
  13. FUROSEMIDE. [Concomitant]
     Active Substance: FUROSEMIDE
  14. XARELTO [Concomitant]
     Active Substance: RIVAROXABAN
  15. MULTIVITAMIN [Concomitant]
     Active Substance: VITAMINS
  16. ENTYVIO [Concomitant]
     Active Substance: VEDOLIZUMAB
  17. FLUTICASONE. [Concomitant]
     Active Substance: FLUTICASONE
  18. FLOVENT HFA [Concomitant]
     Active Substance: FLUTICASONE PROPIONATE
  19. ALBUTEROL HFA [Concomitant]
     Active Substance: ALBUTEROL SULFATE
  20. YONSA [Suspect]
     Active Substance: ABIRATERONE ACETATE
     Indication: BONE CANCER
     Route: 048
     Dates: start: 20191011, end: 20191105
  21. DIPHENHYDRAMINE. [Concomitant]
     Active Substance: DIPHENHYDRAMINE

REACTIONS (1)
  - Death [None]

NARRATIVE: CASE EVENT DATE: 20191105
